FAERS Safety Report 8840521 (Version 2)
Quarter: 2012Q4

REPORT INFORMATION
  Report Type: Report from Study
  Country: US (occurrence: US)
  Receive Date: 20121015
  Receipt Date: 20121016
  Transmission Date: 20130627
  Serious: Yes (Hospitalization)
  Sender: FDA-Public Use
  Company Number: US-ROCHE-1045617

PATIENT
  Age: 67 None
  Sex: Female

DRUGS (5)
  1. RITUXIMAB [Suspect]
     Indication: RHEUMATOID ARTHRITIS
     Dosage: 2 weekly infusions every 6 month
     Route: 042
     Dates: start: 20090501
  2. RITUXIMAB [Suspect]
     Route: 042
     Dates: start: 20120718
  3. RITUXIMAB [Suspect]
     Route: 042
     Dates: start: 20120802
  4. MUCINEX [Concomitant]
     Route: 065
     Dates: start: 20110904
  5. VITAMIN D3 [Concomitant]
     Route: 048

REACTIONS (5)
  - Asthma [Unknown]
  - Influenza [Unknown]
  - Pyrexia [Unknown]
  - Organising pneumonia [Unknown]
  - Chronic obstructive pulmonary disease [Unknown]
